FAERS Safety Report 23592873 (Version 1)
Quarter: 2024Q1

REPORT INFORMATION
  Report Type: Spontaneous
  Country: US (occurrence: None)
  Receive Date: 20240303
  Receipt Date: 20240303
  Transmission Date: 20240410
  Serious: Yes (Life-Threatening, Disabling, Other)
  Sender: FDA-Public Use
  Company Number: None

PATIENT
  Age: 67 Year
  Sex: Male

DRUGS (1)
  1. GADOLINIUM [Suspect]
     Active Substance: GADOLINIUM

REACTIONS (14)
  - Contrast media toxicity [None]
  - Fluid retention [None]
  - Peripheral swelling [None]
  - Impaired quality of life [None]
  - Joint swelling [None]
  - Pain in extremity [None]
  - Arthralgia [None]
  - Peripheral coldness [None]
  - Neuropathy peripheral [None]
  - Scar [None]
  - Sleep disorder [None]
  - Skin burning sensation [None]
  - Sensitive skin [None]
  - Formication [None]

NARRATIVE: CASE EVENT DATE: 20160912
